FAERS Safety Report 6546163-3 (Version None)
Quarter: 2010Q1

REPORT INFORMATION
  Report Type: 
  Country: None (occurrence: None)
  Receive Date: 20100122
  Receipt Date: 20100112
  Transmission Date: 20100710
  Serious: Yes (Hospitalization)
  Sender: FDA-Public Use
  Company Number: RO-RANBAXY-2009RR-29825

PATIENT
  Age: 23 Year
  Sex: Female

DRUGS (2)
  1. NIFEDIPINE [Suspect]
     Indication: SUICIDE ATTEMPT
     Dosage: 3 G, UNK
  2. PARACETAMOL [Suspect]
     Indication: SUICIDE ATTEMPT

REACTIONS (2)
  - OVERDOSE [None]
  - PANCREATITIS [None]
